FAERS Safety Report 19168697 (Version 1)
Quarter: 2021Q2

REPORT INFORMATION
  Report Type: Spontaneous
  Country: US (occurrence: US)
  Receive Date: 20210422
  Receipt Date: 20210422
  Transmission Date: 20210717
  Serious: No
  Sender: FDA-Public Use
  Company Number: US-CELGENEUS-USA-20210403013

PATIENT
  Sex: Male
  Weight: 84.9 kg

DRUGS (4)
  1. THALOMID [Suspect]
     Active Substance: THALIDOMIDE
     Dosage: 200 MILLIGRAM
     Route: 048
     Dates: start: 202102
  2. THALOMID [Suspect]
     Active Substance: THALIDOMIDE
     Indication: OFF LABEL USE
     Dosage: 50?100 MILLIGRAM
     Route: 048
     Dates: start: 201907
  3. THALOMID [Suspect]
     Active Substance: THALIDOMIDE
     Indication: CROHN^S DISEASE
     Dosage: 100 MILLIGRAM
     Route: 048
     Dates: start: 201503
  4. THALOMID [Suspect]
     Active Substance: THALIDOMIDE
     Indication: CROHN^S DISEASE
     Dosage: 100?200 MILLIGRAM
     Route: 048
     Dates: start: 201805

REACTIONS (3)
  - Hangnail [Not Recovered/Not Resolved]
  - Erythema [Not Recovered/Not Resolved]
  - Sensory disturbance [Not Recovered/Not Resolved]
